FAERS Safety Report 23165687 (Version 2)
Quarter: 2024Q1

REPORT INFORMATION
  Report Type: Spontaneous
  Country: JP (occurrence: JP)
  Receive Date: 20231109
  Receipt Date: 20240106
  Transmission Date: 20240409
  Serious: Yes (Other)
  Sender: FDA-Public Use
  Company Number: JP-UCBSA-2023053424

PATIENT
  Age: 14 Year
  Sex: Female

DRUGS (1)
  1. KEPPRA [Suspect]
     Active Substance: LEVETIRACETAM
     Indication: Partial seizures
     Dosage: UNK, 2X/DAY (BID) (EVERY 12 HOURS)
     Route: 048

REACTIONS (1)
  - Encephalitis autoimmune [Recovered/Resolved]
